FAERS Safety Report 17307102 (Version 1)
Quarter: 2020Q1

REPORT INFORMATION
  Report Type: Spontaneous
  Country: CH (occurrence: CH)
  Receive Date: 20200123
  Receipt Date: 20200123
  Transmission Date: 20200409
  Serious: Yes (Hospitalization, Other)
  Sender: FDA-Public Use
  Company Number: CH-PFIZER INC-2020027629

PATIENT
  Age: 77 Year
  Sex: Female

DRUGS (15)
  1. PREDNISON GALEPHARM [Suspect]
     Active Substance: PREDNISONE
     Dosage: 10 MG, 1X/DAY
     Route: 048
     Dates: start: 20200108, end: 20200109
  2. FLOXAL [Suspect]
     Active Substance: OFLOXACIN
     Indication: UVEITIS
     Dosage: UNK
     Dates: start: 20191230
  3. ALDACTONE [Suspect]
     Active Substance: SPIRONOLACTONE
     Dosage: 12.5 MG, 1X/DAY
     Route: 048
     Dates: end: 20200103
  4. ULTRACORTENOL [PREDNISOLONE PIVALATE] [Suspect]
     Active Substance: PREDNISOLONE PIVALATE
     Dosage: 1 DF, 1X/DAY (1 LOCAL APPLICATION EACH EVENING)
     Route: 001
     Dates: start: 20191231
  5. LIXIANA [Suspect]
     Active Substance: EDOXABAN TOSYLATE
     Indication: ATRIAL FIBRILLATION
     Dosage: 60 MG, 1X/DAY
     Route: 048
  6. LIXIANA [Suspect]
     Active Substance: EDOXABAN TOSYLATE
     Indication: TACHYCARDIA
  7. ROSUVASTATIN MEPHA LACTAB [Concomitant]
     Active Substance: ROSUVASTATIN CALCIUM
     Dosage: 20 MG, 1X/DAY
     Route: 048
  8. PREDNISON GALEPHARM [Suspect]
     Active Substance: PREDNISONE
     Dosage: 20 MG, UNK (IN TOTAL)
     Route: 048
     Dates: start: 20200107, end: 20200107
  9. SOLU-MEDROL [Suspect]
     Active Substance: METHYLPREDNISOLONE SODIUM SUCCINATE
     Indication: UVEITIS
     Dosage: 250 MG, UNK (IN TOTAL)
     Route: 042
     Dates: start: 20200101, end: 20200101
  10. PANTOPRAZOLE SODIUM. [Concomitant]
     Active Substance: PANTOPRAZOLE SODIUM
     Dosage: 40 MG, 1X/DAY
     Route: 048
  11. PRED FORTE [Suspect]
     Active Substance: PREDNISOLONE ACETATE
     Dosage: 1 GTT, CYCLIC (1 DROP/ HOUR CHANGING TO 1 DROP/ 2 HOURS)
     Route: 001
     Dates: start: 20191230
  12. PREDNISON GALEPHARM [Suspect]
     Active Substance: PREDNISONE
     Dosage: 30 MG, 1X/DAY
     Route: 048
     Dates: start: 20200103, end: 20200106
  13. METOPROLOL MEPHA ZOK [Concomitant]
     Active Substance: METOPROLOL SUCCINATE
     Dosage: 100 MG, 2X/DAY
     Route: 048
  14. PREDNISON GALEPHARM [Suspect]
     Active Substance: PREDNISONE
     Indication: UVEITIS
     Dosage: UNK
     Dates: end: 20200102
  15. ENTRESTO [Concomitant]
     Active Substance: SACUBITRIL\VALSARTAN
     Dosage: 150 MG, 2X/DAY
     Route: 048

REACTIONS (4)
  - Haematoma [Recovered/Resolved]
  - Substance-induced psychotic disorder [Recovered/Resolved]
  - Delirium [Recovered/Resolved]
  - Hyperkalaemia [Recovered/Resolved]

NARRATIVE: CASE EVENT DATE: 20200102
